FAERS Safety Report 5411616-8 (Version None)
Quarter: 2007Q3

REPORT INFORMATION
  Report Type: 
  Country: None (occurrence: None)
  Receive Date: 20070810
  Receipt Date: 20070731
  Transmission Date: 20080115
  Serious: Yes (Hospitalization, Other)
  Sender: FDA-Public Use
  Company Number: DE-PFIZER INC-2007063551

PATIENT
  Age: 60 Year
  Sex: Female

DRUGS (3)
  1. METHYLPREDNISOLONE SODIUM SUCCINATE [Suspect]
     Indication: IMMUNOSUPPRESSION
     Dosage: DAILY DOSE:16MG
  2. CYCLOSPORINE [Suspect]
     Indication: IMMUNOSUPPRESSION
     Dosage: DAILY DOSE:300MG
     Dates: start: 20030101
  3. MYCOPHENOLATE MOFETIL [Concomitant]

REACTIONS (2)
  - MYCOBACTERIAL INFECTION [None]
  - SKIN INFECTION [None]
